FAERS Safety Report 22236794 (Version 1)
Quarter: 2023Q2

REPORT INFORMATION
  Report Type: Spontaneous
  Country: CA (occurrence: CA)
  Receive Date: 20230420
  Receipt Date: 20230420
  Transmission Date: 20230722
  Serious: Yes (Other)
  Sender: FDA-Public Use
  Company Number: CA-APIL-2311699US

PATIENT

DRUGS (1)
  1. OZURDEX [Suspect]
     Active Substance: DEXAMETHASONE
     Indication: Hypotony of eye
     Dosage: 0.7 MG, SINGLE
     Route: 031

REACTIONS (3)
  - Corneal graft failure [Unknown]
  - Device dislocation [Unknown]
  - Off label use [Unknown]
